FAERS Safety Report 8398824-1 (Version None)
Quarter: 2012Q2

REPORT INFORMATION
  Report Type: 
  Country: None (occurrence: None)
  Receive Date: 20120531
  Receipt Date: 20120511
  Transmission Date: 20120825
  Serious: Yes (Other)
  Sender: FDA-Public Use
  Company Number: ES-BAYER-2012-050107

PATIENT
  Age: 50 Year
  Sex: Male

DRUGS (19)
  1. ACTOCORTINA [Concomitant]
     Dosage: 0.2-0.3 ML OF DILLUITION 3CC VIGAMOX + 3 CC ACTOCORTINA
     Route: 047
     Dates: start: 20120222, end: 20120222
  2. BSS [Concomitant]
  3. OFTALAR [Concomitant]
     Dosage: 1 GTT, TID
     Route: 047
     Dates: start: 20120219, end: 20120221
  4. MOXIFLOXACIN [Suspect]
     Dosage: 0.2-0.3ML OF DILUTION 3 CC VIGAMOX + 3 CC
     Route: 047
     Dates: start: 20120222, end: 20120222
  5. BUPIVACAINA [Concomitant]
  6. BETADINE [Concomitant]
  7. BETADINE [Concomitant]
  8. AMIKACINA G.I [Concomitant]
  9. TOBRADEX [Concomitant]
     Dosage: 1 GTT 8X/DAY
     Route: 047
     Dates: start: 20120222, end: 20120222
  10. VISCOAT [Concomitant]
  11. LIQUIFILM [Concomitant]
  12. LIQUIFILM [Concomitant]
  13. MYDRIACYL [Concomitant]
     Dosage: 1 GTT, ONCE
     Route: 047
     Dates: start: 20120222, end: 20120222
  14. VANCOMICINA [Concomitant]
  15. OFTALAR [Concomitant]
     Dosage: 1 GTT, QID
     Route: 047
     Dates: start: 20120223, end: 20120227
  16. TOBRADEX [Concomitant]
     Dosage: 1 GTT, QID
     Route: 047
     Dates: start: 20120223, end: 20120227
  17. LIDOCAINA [Concomitant]
  18. CEFTAZIDIMA GI [Concomitant]
  19. OFTALAR [Concomitant]
     Dosage: 1GTT 8 X/DAY
     Route: 047
     Dates: start: 20120222, end: 20120223

REACTIONS (7)
  - INTRAOCULAR PRESSURE INCREASED [None]
  - HYPOPYON [None]
  - VITRITIS [None]
  - OCULAR HYPERAEMIA [None]
  - ENDOPHTHALMITIS [None]
  - RETINAL DETACHMENT [None]
  - CORNEAL OEDEMA [None]
